FAERS Safety Report 22052605 (Version 1)
Quarter: 2023Q1

REPORT INFORMATION
  Report Type: Report from Study
  Country: US (occurrence: US)
  Receive Date: 20230302
  Receipt Date: 20230302
  Transmission Date: 20230418
  Serious: Yes (Hospitalization)
  Sender: FDA-Public Use
  Company Number: US-ARGENX-2022-ARGX-US001828

PATIENT
  Age: 68 Year
  Sex: Female
  Weight: 65.3 kg

DRUGS (22)
  1. EFGARTIGIMOD ALFA [Suspect]
     Active Substance: EFGARTIGIMOD ALFA
     Indication: Chronic inflammatory demyelinating polyradiculoneuropathy
     Dosage: 6.1 MG, 1/WEEK
     Route: 058
     Dates: start: 20211011
  2. HYALURONIDASE (HUMAN RECOMBINANT) [Suspect]
     Active Substance: HYALURONIDASE (HUMAN RECOMBINANT)
     Indication: Chronic inflammatory demyelinating polyradiculoneuropathy
     Dosage: 5.6 ML, 1/WEEK
     Route: 058
     Dates: start: 20211011
  3. METFORMIN [Concomitant]
     Active Substance: METFORMIN HYDROCHLORIDE
     Indication: Type 2 diabetes mellitus
     Dosage: 500 MG, BID
     Route: 048
     Dates: start: 20050315
  4. GABAPENTIN [Concomitant]
     Active Substance: GABAPENTIN
     Indication: Chronic inflammatory demyelinating polyradiculoneuropathy
     Dosage: 400 MG, BID
     Route: 048
     Dates: start: 20140830
  5. LIPITOR [Concomitant]
     Active Substance: ATORVASTATIN CALCIUM
     Indication: Hyperlipidaemia
     Dosage: UNK, DAILY
     Route: 048
     Dates: start: 20211025
  6. LIPITOR [Concomitant]
     Active Substance: ATORVASTATIN CALCIUM
     Dosage: UNK, DAILY
     Route: 048
     Dates: start: 20170807, end: 20211024
  7. IBUPROFEN [Concomitant]
     Active Substance: IBUPROFEN
     Indication: Back pain
     Dosage: UNK
  8. ZOLOFT [Concomitant]
     Active Substance: SERTRALINE HYDROCHLORIDE
     Dosage: 50 MG, DAILY
     Route: 048
     Dates: start: 20000215
  9. SYNTHROID [Concomitant]
     Active Substance: LEVOTHYROXINE SODIUM
     Dosage: 125 UG, DAILY
     Route: 048
     Dates: start: 20050710
  10. MELATONIN [Concomitant]
     Active Substance: MELATONIN
     Dosage: 10 MG, DAILY
     Route: 048
     Dates: start: 20140820
  11. ASPIRIN [Concomitant]
     Active Substance: ASPIRIN
     Dosage: 81 MG, DAILY
     Route: 048
     Dates: start: 20150707
  12. VITAMIN B12 [Concomitant]
     Active Substance: CYANOCOBALAMIN
     Dosage: 2 DF, DAILY
     Route: 048
     Dates: start: 20160825
  13. OSCAL D [Concomitant]
     Active Substance: CALCIUM CARBONATE\CHOLECALCIFEROL
     Dosage: 1 DF, BID
     Dates: start: 20160926
  14. NORVASC [Concomitant]
     Active Substance: AMLODIPINE BESYLATE
     Dosage: 10 MG, DAILY
     Route: 048
     Dates: start: 20170807
  15. FOSAMAX [Concomitant]
     Active Substance: ALENDRONATE SODIUM
     Dosage: 70 MG, DAILY
     Route: 048
     Dates: start: 20181012
  16. NEURONTIN [Concomitant]
     Active Substance: GABAPENTIN
     Indication: Chronic inflammatory demyelinating polyradiculoneuropathy
     Dosage: 100 MG, BID
     Route: 048
     Dates: start: 20140830
  17. DIAZEPAM [Concomitant]
     Active Substance: DIAZEPAM
     Dosage: 2.5 MG, DAILY
     Route: 048
     Dates: start: 20210115
  18. DELTASONE [Concomitant]
     Active Substance: PREDNISONE
     Dosage: 7 MG, DAILY
     Route: 048
     Dates: start: 20210412
  19. ORASONE [Concomitant]
     Active Substance: PREDNISONE
     Dosage: 7 MG, DAILY
     Route: 048
     Dates: start: 20210806
  20. GLUCOPHAGE XR [Concomitant]
     Active Substance: METFORMIN HYDROCHLORIDE
     Dosage: 500 MG, BID
     Route: 048
     Dates: start: 20050315
  21. LASIX [Concomitant]
     Active Substance: FUROSEMIDE
     Indication: Drug therapy
     Dosage: 10 MG QOD
     Route: 048
     Dates: start: 20211025, end: 20220910
  22. LASIX [Concomitant]
     Active Substance: FUROSEMIDE
     Dosage: 10 MG QOD
     Route: 048
     Dates: start: 20211026, end: 20220910

REACTIONS (2)
  - Urinary tract infection [Recovered/Resolved]
  - Acute kidney injury [Recovered/Resolved]

NARRATIVE: CASE EVENT DATE: 20220908
